FAERS Safety Report 5084996-3 (Version None)
Quarter: 2006Q3

REPORT INFORMATION
  Report Type: 
  Country: None (occurrence: None)
  Receive Date: 20060822
  Receipt Date: 20060811
  Transmission Date: 20061208
  Serious: Yes (Hospitalization)
  Sender: FDA-Public Use
  Company Number: FR-SOLVAY-00206002694

PATIENT
  Age: 73 Year
  Sex: Male

DRUGS (5)
  1. DAFLON [Concomitant]
     Indication: ILL-DEFINED DISORDER
     Dosage: DAILY DOSE:  UNKNOWN
     Route: 048
  2. COVERSYL [Suspect]
     Indication: ILL-DEFINED DISORDER
     Dosage: DAILY DOSE: 4 MILLIGRAM(S)
     Route: 048
     Dates: end: 20060101
  3. ALLOPURINOL [Suspect]
     Indication: HYPERURICAEMIA
     Dosage: DAILY DOSE:  UNKNOWN
     Route: 048
     Dates: start: 20060524, end: 20060628
  4. AMLODIPINE BESYLATE [Suspect]
     Indication: ILL-DEFINED DISORDER
     Dosage: DAILY DOSE: 10 MILLIGRAM(S)
     Route: 048
     Dates: end: 20060101
  5. ASASANTIN [Suspect]
     Indication: ILL-DEFINED DISORDER
     Dosage: DAILY DOSE:  UNKNOWN
     Route: 048
     Dates: end: 20060101

REACTIONS (3)
  - EOSINOPHILIA [None]
  - RENAL FAILURE ACUTE [None]
  - TOXIC SKIN ERUPTION [None]
